FAERS Safety Report 8960919 (Version 1)
Quarter: 2012Q4

REPORT INFORMATION
  Report Type: 
  Country: US (occurrence: US)
  Receive Date: 20121212
  Receipt Date: 20121212
  Transmission Date: 20130627
  Serious: No
  Sender: FDA-Public Use
  Company Number: US-BAYER-2012-124323

PATIENT
  Age: 18 Year
  Sex: Female

DRUGS (1)
  1. MIRENA [Suspect]
     Dosage: UNK
     Dates: start: 20121120

REACTIONS (2)
  - Device difficult to use [None]
  - Device physical property issue [None]
